FAERS Safety Report 16145154 (Version 1)
Quarter: 2019Q2

REPORT INFORMATION
  Report Type: Spontaneous
  Country: DE (occurrence: DE)
  Receive Date: 20190402
  Receipt Date: 20190402
  Transmission Date: 20190711
  Serious: Yes (Hospitalization, Other)
  Sender: FDA-Public Use
  Company Number: DE-LUPIN PHARMACEUTICALS INC.-2019-01889

PATIENT
  Age: 67 Year
  Sex: Male

DRUGS (6)
  1. HYPNOREX [Suspect]
     Active Substance: LITHIUM CARBONATE
     Dosage: 1 GRAM, QD
     Route: 065
     Dates: start: 2000
  2. HYPNOREX [Suspect]
     Active Substance: LITHIUM CARBONATE
     Dosage: 1.2 GRAM, QD
     Route: 065
     Dates: start: 2001
  3. QUILONUM                           /00033702/ [Suspect]
     Active Substance: LITHIUM CARBONATE
     Indication: BIPOLAR DISORDER
     Dosage: 1.35 GRAM, QD
     Route: 065
     Dates: start: 2005
  4. LISINOPRIL. [Suspect]
     Active Substance: LISINOPRIL
     Indication: HYPERTENSION
     Dosage: 20 MILLIGRAM
     Route: 065
     Dates: start: 2001
  5. IBUPROFEN. [Suspect]
     Active Substance: IBUPROFEN
     Indication: NASOPHARYNGITIS
     Dosage: UNK
     Route: 065
  6. HYPNOREX [Suspect]
     Active Substance: LITHIUM CARBONATE
     Indication: BIPOLAR DISORDER
     Dosage: 0.8 GRAM, QD
     Route: 065
     Dates: start: 1998

REACTIONS (11)
  - Tremor [Recovering/Resolving]
  - Ataxia [Recovered/Resolved]
  - Toxicity to various agents [Recovering/Resolving]
  - Dysphagia [Recovered/Resolved]
  - Delirium [Recovered/Resolved]
  - Self-medication [Unknown]
  - Aphasia [Recovered/Resolved]
  - Disorientation [Recovered/Resolved]
  - Hypomania [Unknown]
  - Apraxia [Recovered/Resolved]
  - Agitation [Recovered/Resolved]
